FAERS Safety Report 4693194-4 (Version None)
Quarter: 2005Q2

REPORT INFORMATION
  Report Type: 
  Country: None (occurrence: None)
  Receive Date: 20050617
  Receipt Date: 20050606
  Transmission Date: 20051028
  Serious: Yes (Hospitalization)
  Sender: FDA-Public Use
  Company Number: US-JNJFOC-20050602988

PATIENT
  Sex: Male
  Weight: 14.52 kg

DRUGS (3)
  1. CHILDREN'S TYLENOL [Suspect]
     Route: 049
  2. CHILDREN'S TYLENOL [Suspect]
     Route: 049
  3. CHILDREN'S TYLENOL [Suspect]
     Dosage: 160 MG EVERY 4-6 HOURS AS NEEDED
     Route: 049

REACTIONS (5)
  - AMMONIA INCREASED [None]
  - HEPATIC ENZYME INCREASED [None]
  - HEPATOCELLULAR DAMAGE [None]
  - JAUNDICE [None]
  - LIVER TRANSPLANT [None]
